FAERS Safety Report 7816134-5 (Version None)
Quarter: 2011Q4

REPORT INFORMATION
  Report Type: 
  Country: None (occurrence: None)
  Receive Date: 20111015
  Receipt Date: 20111006
  Transmission Date: 20120403
  Serious: Yes (Death)
  Sender: FDA-Public Use
  Company Number: GB-ROCHE-1001886

PATIENT

DRUGS (1)
  1. ACTEMRA [Suspect]
     Indication: RHEUMATOID ARTHRITIS

REACTIONS (1)
  - SEPSIS [None]
